FAERS Safety Report 16130679 (Version 2)
Quarter: 2019Q2

REPORT INFORMATION
  Report Type: Spontaneous
  Country: JP (occurrence: JP)
  Receive Date: 20190328
  Receipt Date: 20190418
  Transmission Date: 20190711
  Serious: Yes (Hospitalization, Other)
  Sender: FDA-Public Use
  Company Number: JP-MALLINCKRODT-T201902590

PATIENT
  Age: 79 Year
  Sex: Female
  Weight: 49 kg

DRUGS (11)
  1. TERNELIN [Concomitant]
     Active Substance: TIZANIDINE
     Indication: BACK PAIN
     Dosage: UNK
     Route: 048
  2. ZACRAS COMBINATION [Concomitant]
     Active Substance: AMLODIPINE BESYLATE\AZILSARTAN
     Indication: HYPERTENSION
     Dosage: 1 DF, QD
     Route: 048
  3. LIPLE [Concomitant]
     Active Substance: ALPROSTADIL
     Indication: PERIPHERAL ARTERIAL OCCLUSIVE DISEASE
     Dosage: 1 DF, QD
     Route: 042
  4. LIMAPROST ALFADEX [Concomitant]
     Active Substance: LIMAPROST
     Indication: PERIPHERAL ARTERIAL OCCLUSIVE DISEASE
     Dosage: UNK
     Route: 048
  5. SUMILU [Concomitant]
     Active Substance: FELBINAC
     Indication: MYALGIA
     Dosage: UNK
  6. LOTRIGA [Concomitant]
     Active Substance: OMEGA-3-ACID ETHYL ESTERS
     Indication: HYPERLIPIDAEMIA
     Dosage: 2 G, QD
     Route: 048
  7. CELECOX [Concomitant]
     Active Substance: CELECOXIB
     Indication: PAIN
     Dosage: UNK
     Route: 048
  8. BONALON [Concomitant]
     Active Substance: ALENDRONATE SODIUM
     Indication: OSTEOPOROSIS
     Dosage: 900 ?G, MONTHLY
     Route: 042
  9. AMITIZA [Suspect]
     Active Substance: LUBIPROSTONE
     Indication: CONSTIPATION
     Dosage: 24 ?G, BID
     Route: 065
     Dates: start: 20190311, end: 20190320
  10. REBAMIPIDE [Concomitant]
     Active Substance: REBAMIPIDE
     Indication: GASTRITIS
     Dosage: UNK
     Route: 048
  11. RIZE [Concomitant]
     Active Substance: CLOTIAZEPAM
     Indication: ANXIETY DISORDER
     Dosage: 10 MG, QD
     Route: 048

REACTIONS (2)
  - Loss of consciousness [Recovered/Resolved]
  - Pulmonary embolism [Recovered/Resolved]

NARRATIVE: CASE EVENT DATE: 20190321
